FAERS Safety Report 9972868 (Version 3)
Quarter: 2014Q1

REPORT INFORMATION
  Report Type: Spontaneous
  Country: GB (occurrence: GB)
  Receive Date: 20140306
  Receipt Date: 20140328
  Transmission Date: 20141002
  Serious: Yes (Hospitalization, Disabling)
  Sender: FDA-Public Use
  Company Number: GB-ABBVIE-14P-167-1205016-00

PATIENT
  Age: 10 Year
  Sex: Female
  Weight: 30 kg

DRUGS (8)
  1. CHIROCAINE [Suspect]
     Indication: ANALGESIC THERAPY
     Dosage: 8ML/HR, 24 HRS, BOLUS OF CHIROCAINE
     Route: 008
     Dates: start: 20140217, end: 20140217
  2. CEFOTAXIME [Concomitant]
     Indication: PROPHYLAXIS
     Dosage: TIME: 09:30
     Route: 042
     Dates: start: 20140217
  3. METRONIDAZOLE [Concomitant]
     Indication: PROPHYLAXIS
     Dosage: TIME: 09:30
     Route: 042
     Dates: start: 20140217
  4. FENTANYL [Concomitant]
     Indication: ANAESTHESIA
     Dosage: TIME: 09:30
     Route: 042
     Dates: start: 20140217
  5. ROCURONIUM [Concomitant]
     Indication: ANAESTHESIA
     Dosage: TIME: 09:30
     Route: 042
     Dates: start: 20140217
  6. PROPOFOL [Concomitant]
     Indication: ANAESTHESIA
     Dosage: TIME: 09:30
  7. NOVORAPID [Concomitant]
     Indication: DIABETES MELLITUS MANAGEMENT
     Dosage: VARIABLE VIA ROUTE IVI, TIME: MIDNIGHT 16-17-FEB-2014
     Dates: start: 201402
  8. MORPHINE [Concomitant]
     Indication: ANALGESIC THERAPY
     Dosage: TIME: 14:00
     Dates: start: 20140217, end: 20140219

REACTIONS (4)
  - Neuromuscular block prolonged [Not Recovered/Not Resolved]
  - Spinal cord oedema [Not Recovered/Not Resolved]
  - Motor dysfunction [Not Recovered/Not Resolved]
  - Sensory loss [Not Recovered/Not Resolved]
